FAERS Safety Report 18325277 (Version 1)
Quarter: 2020Q3

REPORT INFORMATION
  Report Type: Report from Study
  Country: DE (occurrence: DE)
  Receive Date: 20200929
  Receipt Date: 20200929
  Transmission Date: 20201103
  Serious: Yes (Hospitalization, Other)
  Sender: FDA-Public Use
  Company Number: DE-JNJFOC-A-CH2020-201343

PATIENT
  Age: 36 Year
  Sex: Female
  Weight: 67 kg

DRUGS (11)
  1. SALBUTAMOL [Concomitant]
     Active Substance: ALBUTEROL
     Indication: PROPHYLAXIS
     Dosage: UNK
     Route: 055
     Dates: start: 20200214
  2. DEKRISTOL [Concomitant]
     Active Substance: CHOLECALCIFEROL
     Indication: PROPHYLAXIS
     Dosage: UNK
     Route: 048
     Dates: start: 20180923
  3. TORASEMID [Concomitant]
     Active Substance: TORSEMIDE
     Indication: PROPHYLAXIS
     Dosage: UNK
     Route: 048
     Dates: start: 20180923
  4. L?THYROXIN [Concomitant]
     Active Substance: LEVOTHYROXINE SODIUM
     Indication: HYPOTHYROIDISM
     Dosage: UNK
     Route: 048
     Dates: start: 2014
  5. ADCIRCA [Concomitant]
     Active Substance: TADALAFIL
     Indication: PULMONARY ARTERIAL HYPERTENSION
     Dosage: 40 MG, QD
     Route: 048
     Dates: start: 20200124
  6. SILDENAFIL. [Concomitant]
     Active Substance: SILDENAFIL
     Indication: PULMONARY ARTERIAL HYPERTENSION
     Dosage: 20 MG, QD
     Dates: start: 20181003, end: 201904
  7. BECLOMETHASONE [Concomitant]
     Active Substance: BECLOMETHASONE
     Indication: PROPHYLAXIS
  8. MACITENTAN [Suspect]
     Active Substance: MACITENTAN
     Indication: PULMONARY ARTERIAL HYPERTENSION
     Dosage: 10 MG, QD
     Route: 048
     Dates: start: 20181003, end: 201904
  9. BECLOMETHASONE [Concomitant]
     Active Substance: BECLOMETHASONE
     Indication: DYSPNOEA
     Dosage: UNK
     Route: 055
     Dates: start: 20190418
  10. MACITENTAN [Suspect]
     Active Substance: MACITENTAN
     Dosage: 10 MG, QD
     Route: 048
     Dates: start: 20200124
  11. SALBUTAMOL [Concomitant]
     Active Substance: ALBUTEROL
     Indication: DYSPNOEA
     Dosage: UNK, PRN
     Route: 055
     Dates: start: 20190418, end: 201908

REACTIONS (13)
  - Condition aggravated [Unknown]
  - Disease progression [Unknown]
  - Pyrexia [Not Recovered/Not Resolved]
  - Dyspnoea [Not Recovered/Not Resolved]
  - Exercise tolerance decreased [Unknown]
  - N-terminal prohormone brain natriuretic peptide increased [Unknown]
  - Oedema peripheral [Unknown]
  - Anaemia [Not Recovered/Not Resolved]
  - Pulmonary arterial hypertension [Unknown]
  - Dizziness [Unknown]
  - Chest discomfort [Unknown]
  - Respiratory tract infection [Not Recovered/Not Resolved]
  - Iron deficiency anaemia [Recovered/Resolved]

NARRATIVE: CASE EVENT DATE: 20200109
